FAERS Safety Report 7652731-8 (Version None)
Quarter: 2011Q3

REPORT INFORMATION
  Report Type: 
  Country: None (occurrence: None)
  Receive Date: 20110728
  Receipt Date: 20110714
  Transmission Date: 20111222
  Serious: Yes (Life-Threatening, Other)
  Sender: FDA-Public Use
  Company Number: 2011-2133

PATIENT
  Age: 49 Year
  Sex: Male

DRUGS (1)
  1. DYSPORT [Suspect]
     Indication: SKIN COSMETIC PROCEDURE
     Dosage: 150 UNITS (150 UNITS, SINGLE CYCLE), INTRAMUSCULAR
     Route: 030

REACTIONS (1)
  - ANAPHYLACTIC REACTION [None]
